FAERS Safety Report 20930097 (Version 2)
Quarter: 2022Q3

REPORT INFORMATION
  Report Type: Spontaneous
  Country: US (occurrence: US)
  Receive Date: 20220608
  Receipt Date: 20220707
  Transmission Date: 20221027
  Serious: No
  Sender: FDA-Public Use
  Company Number: US-009507513-2206USA001374

PATIENT
  Sex: Female

DRUGS (1)
  1. MOLNUPIRAVIR [Suspect]
     Active Substance: MOLNUPIRAVIR
     Dosage: 1 DOSAGE FORM
     Route: 048
     Dates: start: 20220602

REACTIONS (2)
  - Pyrexia [Unknown]
  - Fear [Unknown]

NARRATIVE: CASE EVENT DATE: 20220601
